FAERS Safety Report 13051856 (Version 1)
Quarter: 2016Q4

REPORT INFORMATION
  Report Type: Spontaneous
  Country: CH (occurrence: CH)
  Receive Date: 20161221
  Receipt Date: 20161221
  Transmission Date: 20170207
  Serious: Yes (Death)
  Sender: FDA-Public Use
  Company Number: CH-BAYER-2016-236925

PATIENT
  Age: 69 Year
  Sex: Female
  Weight: 57.2 kg

DRUGS (30)
  1. CIPROXIN 250 MG [Suspect]
     Active Substance: CIPROFLOXACIN
     Dosage: 250 MG, BID
     Dates: start: 20161124, end: 20161125
  2. MINOCIN AKNE [Suspect]
     Active Substance: MINOCYCLINE HYDROCHLORIDE
     Dosage: 50 MG, BID
     Dates: start: 20161123, end: 20161124
  3. FRAGMIN [Suspect]
     Active Substance: DALTEPARIN SODIUM
     Dosage: 0.2 ML, QD
     Route: 058
     Dates: start: 20161118, end: 20161124
  4. DAFALGAN [Suspect]
     Active Substance: ACETAMINOPHEN
     Dosage: 1 G, UNK
     Dates: start: 20161115, end: 20161116
  5. LYRICA [Concomitant]
     Active Substance: PREGABALIN
     Dosage: 75 MG, QD
     Dates: start: 20161123, end: 20161124
  6. NOVALGIN [Concomitant]
     Active Substance: METAMIZOLE SODIUM
     Dosage: 40 GTT, QID
  7. MEPHAMESON [DEXAMETHASONE PHOSPHATE] [Concomitant]
     Dosage: 8 MG, UNK
     Dates: start: 20161123, end: 20161123
  8. PANTOZOL [Suspect]
     Active Substance: PANTOPRAZOLE SODIUM
     Dosage: 40 MG, QD
     Dates: start: 20161115, end: 20161116
  9. MOVICOL [Concomitant]
     Active Substance: POLYETHYLENE GLYCOL 3350\POTASSIUM CHLORIDE\SODIUM BICARBONATE\SODIUM CHLORIDE
     Dosage: 1 DF, PRN
  10. DUROGESIC-TTS [Concomitant]
     Dosage: EVERY 72 HOURS 1 PIECE
     Route: 062
  11. PASPERTIN E [Concomitant]
     Dosage: 30 GTT QID, 0,3 MG/TROPFEN
  12. ERBITUX [Suspect]
     Active Substance: CETUXIMAB
     Dosage: 400 MG, UNK
     Route: 041
     Dates: start: 20161123, end: 20161123
  13. INVANZ [Suspect]
     Active Substance: ERTAPENEM SODIUM
     Dosage: 1000 MG, UNK
     Dates: start: 20161115, end: 20161115
  14. OXYNORM [Suspect]
     Active Substance: OXYCODONE HYDROCHLORIDE
     Dosage: 4 MG, PRN
     Dates: start: 20161114, end: 20161116
  15. OXYNORM [Suspect]
     Active Substance: OXYCODONE HYDROCHLORIDE
     Dosage: 10 MG, UNK
     Dates: start: 20161125, end: 20161125
  16. ATENOLOL. [Concomitant]
     Active Substance: ATENOLOL
     Dosage: 100 MG, QD
     Dates: end: 20161012
  17. TARGIN [Concomitant]
     Active Substance: NALOXONE HYDROCHLORIDE\OXYCODONE HYDROCHLORIDE
     Dosage: 20 MG / 10 MG BID
     Dates: end: 20161115
  18. OXYNORM [Suspect]
     Active Substance: OXYCODONE HYDROCHLORIDE
     Dosage: 7 MG, UNK
     Dates: start: 20161117, end: 20161124
  19. COCAINE [Concomitant]
     Active Substance: COCAINE
     Dosage: 20 ML, PRN
     Route: 002
  20. ESOMEPRAZOLE MAGNESIUM. [Suspect]
     Active Substance: ESOMEPRAZOLE MAGNESIUM
     Dosage: 40 MG, QD
     Route: 048
     Dates: start: 20161117, end: 20161124
  21. MAGNESIOCARD CITRON [Concomitant]
     Active Substance: MAGNESIUM ASPARTATE HYDROCHLORIDE
     Dosage: 10 MMOL, BID
  22. ZOLPIDEM [Suspect]
     Active Substance: ZOLPIDEM\ZOLPIDEM TARTRATE
     Dosage: 5 MG, PRN
     Dates: start: 20161115, end: 20161124
  23. LAXOBERON [Concomitant]
     Active Substance: SODIUM PICOSULFATE
     Dosage: 20 GTT, BID
     Dates: start: 20161114, end: 20161124
  24. LIDOCAINE. [Concomitant]
     Active Substance: LIDOCAINE
     Dosage: 20 MG / ML FL 100 ML IF REQUIRED
  25. EXFORGE HCT [Concomitant]
     Active Substance: AMLODIPINE BESYLATE\HYDROCHLOROTHIAZIDE\VALSARTAN
     Dosage: 1 DF, QD
     Dates: end: 20161012
  26. BEPANTHEN [Concomitant]
     Active Substance: DEXPANTHENOL
     Dosage: 5 %, TID
     Route: 002
  27. TAVEGYL [Concomitant]
     Active Substance: CLEMASTINE FUMARATE
     Dosage: 2 ML, UNK
     Route: 042
     Dates: start: 20161123, end: 20161123
  28. OXYNORM [Suspect]
     Active Substance: OXYCODONE HYDROCHLORIDE
     Dosage: 5 MG, UNK
     Dates: start: 20161116, end: 20161116
  29. VI-DE 3 [Concomitant]
     Active Substance: CHOLECALCIFEROL
     Dosage: 10 GTT, QD
     Dates: start: 20161124, end: 20161124
  30. DEXAMETHASONE ACETATE [Concomitant]
     Active Substance: DEXAMETHASONE ACETATE
     Dosage: 4 MG/ML, UNK
     Route: 042
     Dates: start: 20161123

REACTIONS (8)
  - Acute hepatic failure [Fatal]
  - Bronchial obstruction [None]
  - Sepsis [None]
  - Pneumonia [None]
  - Metabolic disorder [None]
  - Emphysema [None]
  - Pulseless electrical activity [None]
  - Hypoglycaemia [None]

NARRATIVE: CASE EVENT DATE: 20161125
